FAERS Safety Report 8219760-7 (Version None)
Quarter: 2012Q1

REPORT INFORMATION
  Report Type: 
  Country: None (occurrence: None)
  Receive Date: 20120319
  Receipt Date: 20120314
  Transmission Date: 20120608
  Serious: No
  Sender: FDA-Public Use
  Company Number: US-PFIZER INC-2012056261

PATIENT
  Sex: Female
  Weight: 90.703 kg

DRUGS (6)
  1. LISINOPRIL [Concomitant]
     Indication: BLOOD PRESSURE ABNORMAL
     Dosage: 20 MG, 2X/DAY
  2. CELEBREX [Suspect]
     Indication: ARTHROPATHY
  3. CELEBREX [Suspect]
  4. SYNTHROID [Concomitant]
     Dosage: DAILY
  5. CELEBREX [Suspect]
     Indication: SURGERY
     Dosage: 200 MG, 2X/DAY
     Dates: start: 20110101
  6. HYDROCHLOROTHIAZIDE [Concomitant]
     Indication: BLOOD PRESSURE ABNORMAL
     Dosage: DAILY

REACTIONS (1)
  - ACTIVITIES OF DAILY LIVING IMPAIRED [None]
